FAERS Safety Report 5902389-0 (Version None)
Quarter: 2008Q3

REPORT INFORMATION
  Report Type: 
  Country: None (occurrence: None)
  Receive Date: 20080925
  Receipt Date: 20080911
  Transmission Date: 20090109
  Serious: Yes (Other)
  Sender: FDA-Public Use
  Company Number: 2008S1013656

PATIENT
  Age: 37 Year
  Sex: Male
  Weight: 111.1313 kg

DRUGS (5)
  1. CLOZAPINE [Suspect]
     Indication: BIPOLAR DISORDER
     Dosage: 400 MG; DAILY; ORAL
     Route: 048
     Dates: end: 20080730
  2. CLOZAPINE [Suspect]
     Indication: PSYCHOTIC DISORDER
     Dosage: 400 MG; DAILY; ORAL
     Route: 048
     Dates: end: 20080730
  3. INTERFERON [Suspect]
     Indication: HEPATITIS C
     Dosage: INTRAMUSCULAR
     Route: 030
     Dates: start: 20070801
  4. VALPROIC ACID [Concomitant]
  5. KLONOPIN [Concomitant]

REACTIONS (5)
  - GRANULOCYTOPENIA [None]
  - LEUKOPENIA [None]
  - LYMPHOCYTE COUNT DECREASED [None]
  - PLATELET COUNT DECREASED [None]
  - RED BLOOD CELL COUNT DECREASED [None]
